FAERS Safety Report 14040947 (Version 2)
Quarter: 2018Q2

REPORT INFORMATION
  Report Type: Spontaneous
  Country: US (occurrence: US)
  Receive Date: 20171004
  Receipt Date: 20180411
  Transmission Date: 20180711
  Serious: No
  Sender: FDA-Public Use
  Company Number: US-AMGEN-USASP2017118845

PATIENT
  Age: 56 Year
  Sex: Female
  Weight: 74.83 kg

DRUGS (1)
  1. PROLIA [Suspect]
     Active Substance: DENOSUMAB
     Indication: OSTEOPOROSIS POSTMENOPAUSAL
     Dosage: 60 MG, Q6MO
     Route: 058
     Dates: start: 20170801

REACTIONS (15)
  - Chest discomfort [Unknown]
  - Thirst [Unknown]
  - Feeling abnormal [Unknown]
  - Tachycardia [Unknown]
  - Throat tightness [Unknown]
  - Myalgia [Unknown]
  - Dyspnoea [Unknown]
  - Presyncope [Unknown]
  - Headache [Unknown]
  - Nausea [Unknown]
  - Chest pain [Unknown]
  - Influenza like illness [Unknown]
  - Dizziness [Unknown]
  - Dehydration [Unknown]
  - Arthralgia [Unknown]

NARRATIVE: CASE EVENT DATE: 20170802
